FAERS Safety Report 5869774-7 (Version None)
Quarter: 2008Q3

REPORT INFORMATION
  Report Type: 
  Country: None (occurrence: None)
  Receive Date: 20080904
  Receipt Date: 20080828
  Transmission Date: 20090109
  Serious: Yes (Hospitalization, Other)
  Sender: FDA-Public Use
  Company Number: JP-ROCHE-572107

PATIENT
  Sex: Male
  Weight: 53.1 kg

DRUGS (6)
  1. CAPECITABINE [Suspect]
     Indication: METASTATIC GASTRIC CANCER
     Dosage: FREQUENCY REPORTED AS: BID.D1-14Q3W
     Route: 048
     Dates: start: 20071212, end: 20080514
  2. CAPECITABINE [Suspect]
     Dosage: FREQUENCY REPORTED AS: BID.D1-14Q3W
     Route: 048
     Dates: start: 20080729
  3. BLINDED BEVACIZUMAB [Suspect]
     Indication: METASTATIC GASTRIC CANCER
     Dosage: FREQUENCY REPORTED AS:D1Q3W DOSAGE FORM REPORTED AS INFUSION
     Route: 042
     Dates: start: 20071212, end: 20080514
  4. BLINDED BEVACIZUMAB [Suspect]
     Dosage: FREQUENCY REPORTED AS:D1Q3W DOSAGE FORM REPORTED AS INFUSION
     Route: 042
     Dates: start: 20080729
  5. CISPLATIN [Suspect]
     Indication: METASTATIC GASTRIC CANCER
     Dosage: FREQUENCY REPORTED AS : D1Q3W DOSAGE FORM REPORTED AS INFUSION
     Route: 042
     Dates: start: 20071212, end: 20080514
  6. CISPLATIN [Suspect]
     Dosage: FREQUENCY REPORTED AS : D1Q3W DOSAGE FORM REPORTED AS INFUSION
     Route: 042
     Dates: start: 20080729

REACTIONS (3)
  - SPLENIC INFARCTION [None]
  - WOUND DEHISCENCE [None]
  - WOUND INFECTION [None]
